FAERS Safety Report 9800983 (Version 2)
Quarter: 2014Q1

REPORT INFORMATION
  Report Type: Report from Study
  Country: FR (occurrence: FR)
  Receive Date: 20140107
  Receipt Date: 20140107
  Transmission Date: 20141002
  Serious: Yes (Hospitalization)
  Sender: FDA-Public Use
  Company Number: FR-BRISTOL-MYERS SQUIBB COMPANY-15664873

PATIENT
  Age: 45 Year
  Sex: Female

DRUGS (3)
  1. IPILIMUMAB [Suspect]
     Indication: MALIGNANT MELANOMA
     Dosage: INTER ON 08APR11
     Route: 042
     Dates: start: 20100204, end: 20110408
  2. POLARAMINE [Concomitant]
     Dosage: 08-09APR2011;9-19APR11 2MG/D
     Dates: start: 20110408, end: 20110419
  3. SOLU-MEDROL [Concomitant]
     Route: 042
     Dates: start: 20110408, end: 20110409

REACTIONS (1)
  - Hypersensitivity [Recovered/Resolved]
